FAERS Safety Report 12099786 (Version 1)
Quarter: 2016Q1

REPORT INFORMATION
  Report Type: Spontaneous
  Country: US (occurrence: None)
  Receive Date: 20160219
  Receipt Date: 20160219
  Transmission Date: 20160526
  Serious: No
  Sender: FDA-Public Use
  Company Number: None

PATIENT

DRUGS (2)
  1. PROPYLENE GLYCOL [Suspect]
     Active Substance: PROPYLENE GLYCOL
  2. CLINDAMYCIN HCL CLINDAMYCIN [Suspect]
     Active Substance: CLINDAMYCIN HYDROCHLORIDE
     Dosage: SOLUTION, TOPICAL 1%
     Route: 061

REACTIONS (3)
  - Documented hypersensitivity to administered product [None]
  - Transcription medication error [None]
  - Drug dispensing error [None]
